FAERS Safety Report 18952709 (Version 1)
Quarter: 2021Q1

REPORT INFORMATION
  Report Type: Report from Study
  Country: NL (occurrence: NL)
  Receive Date: 20210301
  Receipt Date: 20210301
  Transmission Date: 20210420
  Serious: Yes (Hospitalization, Other)
  Sender: FDA-Public Use
  Company Number: NL-ALS-000228

PATIENT
  Age: 78 Year
  Sex: Female

DRUGS (1)
  1. METFORMIN [Suspect]
     Active Substance: METFORMIN HYDROCHLORIDE
     Indication: PRODUCT USED FOR UNKNOWN INDICATION
     Route: 065

REACTIONS (5)
  - Drug level above therapeutic [Recovering/Resolving]
  - Blood bicarbonate decreased [Recovering/Resolving]
  - Dehydration [Recovering/Resolving]
  - Blood creatinine increased [Recovering/Resolving]
  - Lactic acidosis [Recovering/Resolving]
